FAERS Safety Report 7134224-X (Version None)
Quarter: 2010Q4

REPORT INFORMATION
  Report Type: 
  Country: None (occurrence: None)
  Receive Date: 20101203
  Receipt Date: 20101119
  Transmission Date: 20110411
  Serious: Yes (Hospitalization, Other)
  Sender: FDA-Public Use
  Company Number: US-ELI_LILLY_AND_COMPANY-US201009005634

PATIENT
  Sex: Female

DRUGS (10)
  1. FORTEO [Suspect]
     Indication: OSTEOPOROSIS
     Dosage: 20 UG, DAILY (1/D)
     Route: 065
  2. AGGRENOX [Concomitant]
     Dosage: UNK, UNKNOWN
     Route: 065
  3. ASACOL [Concomitant]
     Dosage: 400 D/F, 3/D
     Route: 065
  4. ATENOLOL [Concomitant]
     Indication: BLOOD PRESSURE
     Dosage: 25 MG, DAILY (1/D)
     Route: 065
  5. ATIVAN [Concomitant]
     Dosage: 5 MG, DAILY (1/D)
     Route: 065
  6. CELEXA [Concomitant]
     Dosage: 20 MG, UNKNOWN
     Route: 065
  7. DARVOCET [Concomitant]
     Indication: BACK PAIN
     Dosage: UNK, UNKNOWN
     Route: 065
  8. VITAMINS [Concomitant]
     Dosage: UNK, UNKNOWN
     Route: 065
  9. ZETIA [Concomitant]
  10. VITAMIN D [Concomitant]
     Dosage: 50000 D/F, UNK

REACTIONS (5)
  - APHASIA [None]
  - BLINDNESS TRANSIENT [None]
  - INJECTION SITE PAIN [None]
  - PAIN IN EXTREMITY [None]
  - TRANSIENT ISCHAEMIC ATTACK [None]
